FAERS Safety Report 8456354-2 (Version None)
Quarter: 2012Q2

REPORT INFORMATION
  Report Type: 
  Country: None (occurrence: None)
  Receive Date: 20120621
  Receipt Date: 20120615
  Transmission Date: 20120825
  Serious: Yes (Death)
  Sender: FDA-Public Use
  Company Number: JP-GLAXOSMITHKLINE-B0803318A

PATIENT
  Sex: Female

DRUGS (11)
  1. ERYTHROCIN [Concomitant]
     Dosage: 300MG PER DAY
     Route: 048
     Dates: end: 20120528
  2. THEO-DUR [Concomitant]
     Dosage: 150MG PER DAY
     Route: 048
     Dates: end: 20120528
  3. PREDNISOLONE [Concomitant]
     Dosage: 25MG PER DAY
     Route: 048
  4. ASTOMIN [Concomitant]
     Dosage: 30MG PER DAY
     Route: 048
     Dates: end: 20120528
  5. COTRIM [Concomitant]
     Route: 048
     Dates: end: 20120528
  6. PREDNISOLONE [Concomitant]
     Dosage: 5MG PER DAY
     Route: 048
     Dates: end: 20120528
  7. MUCODYNE [Concomitant]
     Dosage: 750MG PER DAY
     Route: 048
     Dates: end: 20120528
  8. PROMACTA [Suspect]
     Indication: IDIOPATHIC THROMBOCYTOPENIC PURPURA
     Dosage: 12.5MG PER DAY
     Route: 048
     Dates: start: 20110820, end: 20120518
  9. PREDNISOLONE [Concomitant]
     Indication: INTERSTITIAL LUNG DISEASE
     Dosage: 40MG PER DAY
     Route: 048
  10. PREDNISOLONE [Concomitant]
     Dosage: 20MG PER DAY
     Route: 048
  11. MUCOSOLVAN [Concomitant]
     Dosage: 45MG PER DAY
     Route: 048
     Dates: end: 20120528

REACTIONS (1)
  - INTERSTITIAL LUNG DISEASE [None]
